FAERS Safety Report 11371904 (Version 1)
Quarter: 2015Q3

REPORT INFORMATION
  Report Type: Spontaneous
  Country: JP (occurrence: JP)
  Receive Date: 20150812
  Receipt Date: 20150812
  Transmission Date: 20151125
  Serious: Yes (Other)
  Sender: FDA-Public Use
  Company Number: PHJP2015JP011748

PATIENT
  Age: 79 Year
  Sex: Male

DRUGS (4)
  1. ARICEPT [Concomitant]
     Active Substance: DONEPEZIL HYDROCHLORIDE
     Indication: DEMENTIA
     Dosage: UNK
     Route: 065
  2. BLOPRESS [Concomitant]
     Active Substance: CANDESARTAN CILEXETIL
     Indication: PRODUCT USED FOR UNKNOWN INDICATION
     Dosage: UNK
     Route: 065
  3. TEGRETOL [Suspect]
     Active Substance: CARBAMAZEPINE
     Dosage: 200 MG, UNK
     Route: 048
     Dates: start: 20150713
  4. TEGRETOL [Suspect]
     Active Substance: CARBAMAZEPINE
     Indication: PSYCHIATRIC SYMPTOM
     Dosage: 200 MG, BID
     Route: 048
     Dates: start: 20150706, end: 20150712

REACTIONS (7)
  - Feeling abnormal [Unknown]
  - Abasia [Unknown]
  - Off label use [Unknown]
  - Gait disturbance [Unknown]
  - Depressed level of consciousness [Unknown]
  - Liver disorder [Unknown]
  - Dizziness [Unknown]

NARRATIVE: CASE EVENT DATE: 20150709
